FAERS Safety Report 5931909-5 (Version None)
Quarter: 2008Q4

REPORT INFORMATION
  Report Type: 
  Country: None (occurrence: None)
  Receive Date: 20081027
  Receipt Date: 20081015
  Transmission Date: 20090506
  Serious: Yes (Other)
  Sender: FDA-Public Use
  Company Number: JP-PFIZER INC-2008087868

PATIENT
  Age: 54 Year
  Sex: Male
  Weight: 48 kg

DRUGS (4)
  1. METHYLPREDNISOLONE 16MG TAB [Suspect]
     Indication: LYMPHOMA
     Dates: start: 20070524
  2. METHOTREXATE [Suspect]
     Dates: start: 20070524
  3. CYTARABINE [Suspect]
     Dates: start: 20070524
  4. RITUXIMAB [Suspect]
     Dates: start: 20070524

REACTIONS (9)
  - ACUTE RESPIRATORY DISTRESS SYNDROME [None]
  - HEPATIC FUNCTION ABNORMAL [None]
  - HYPOPROTEINAEMIA [None]
  - MUCOUS MEMBRANE DISORDER [None]
  - PANCYTOPENIA [None]
  - PSEUDOMONAS INFECTION [None]
  - SCROTAL SWELLING [None]
  - STAPHYLOCOCCAL INFECTION [None]
  - STOMATITIS [None]
